FAERS Safety Report 5266963-X (Version None)
Quarter: 2007Q1

REPORT INFORMATION
  Report Type: 
  Country: None (occurrence: None)
  Receive Date: 20070312
  Receipt Date: 20070223
  Transmission Date: 20070707
  Serious: Yes (Death, Hospitalization, Other)
  Sender: FDA-Public Use
  Company Number: 2007S1000153

PATIENT
  Age: 18 Year
  Sex: Female
  Weight: 47 kg

DRUGS (6)
  1. CUBICIN [Suspect]
     Indication: BREAST CELLULITIS
     Dosage: 200 MG; X1; IV
     Route: 042
     Dates: start: 20070216, end: 20070216
  2. BACTRIM DS [Concomitant]
  3. PROMETHAZINE [Concomitant]
  4. LUTERA [Concomitant]
  5. ACETAMINOPHEN [Concomitant]
  6. DIPHENHYDRAMINE HCL [Concomitant]

REACTIONS (38)
  - AGITATION [None]
  - ANAPHYLACTIC REACTION [None]
  - BACTERIAL INFECTION [None]
  - BLOOD CALCIUM DECREASED [None]
  - BLOOD GLUCOSE INCREASED [None]
  - BLOOD SMEAR TEST ABNORMAL [None]
  - BLOOD SODIUM DECREASED [None]
  - BRAIN DEATH [None]
  - BRAIN OEDEMA [None]
  - CARDIAC ARREST [None]
  - CONFUSIONAL STATE [None]
  - CYANOSIS [None]
  - DISSEMINATED INTRAVASCULAR COAGULATION [None]
  - DRUG TOXICITY [None]
  - FALL [None]
  - GLUCOSE URINE PRESENT [None]
  - HEPATIC CONGESTION [None]
  - HEPATIC FAILURE [None]
  - HYPOTENSION [None]
  - LOSS OF CONSCIOUSNESS [None]
  - LUNG INFILTRATION [None]
  - LYMPHOCYTE COUNT DECREASED [None]
  - MENINGITIS [None]
  - MULTI-ORGAN FAILURE [None]
  - NEUTROPHIL COUNT DECREASED [None]
  - NUCLEAR MAGNETIC RESONANCE IMAGING BRAIN ABNORMAL [None]
  - PLEURAL ADHESION [None]
  - PULMONARY CONGESTION [None]
  - PULMONARY OEDEMA [None]
  - RENAL FAILURE [None]
  - RENAL FAILURE ACUTE [None]
  - RESPIRATORY FAILURE [None]
  - SEPSIS [None]
  - SEPTIC SHOCK [None]
  - SINUS TACHYCARDIA [None]
  - SPLEEN CONGESTION [None]
  - TOXIC SHOCK SYNDROME [None]
  - WHITE BLOOD CELL COUNT DECREASED [None]
